FAERS Safety Report 11334961 (Version 1)
Quarter: 2015Q3

REPORT INFORMATION
  Report Type: Spontaneous
  Country: US (occurrence: None)
  Receive Date: 20150731
  Receipt Date: 20150731
  Transmission Date: 20151125
  Serious: Yes (Other)
  Sender: FDA-Public Use
  Company Number: None

PATIENT
  Age: 58 Year
  Sex: Male
  Weight: 72.58 kg

DRUGS (3)
  1. ASPIRIN. [Concomitant]
     Active Substance: ASPIRIN
  2. MULTIVITAMIN [Concomitant]
     Active Substance: VITAMINS
  3. XARELTO [Suspect]
     Active Substance: RIVAROXABAN
     Indication: DEEP VEIN THROMBOSIS
     Dosage: 1 PILL
     Route: 048
     Dates: start: 20141113, end: 20150530

REACTIONS (2)
  - Gynaecomastia [None]
  - Breast pain [None]

NARRATIVE: CASE EVENT DATE: 20150330
